FAERS Safety Report 8393963-3 (Version None)
Quarter: 2012Q2

REPORT INFORMATION
  Report Type: 
  Country: None (occurrence: None)
  Receive Date: 20120517
  Receipt Date: 20120509
  Transmission Date: 20120825
  Serious: Yes (Hospitalization)
  Sender: FDA-Public Use
  Company Number: 2012SP024704

PATIENT
  Age: 47 Year
  Sex: Male
  Weight: 70 kg

DRUGS (17)
  1. LENDORMIN [Concomitant]
  2. ZOLOFT [Concomitant]
  3. LENDORMIN [Concomitant]
  4. PEG-INTRON [Suspect]
     Indication: HEPATITIS C
     Dosage: 1.43 MCG/KG;QW;SC, 1.18 MCG/KG;QW;SC
     Route: 058
     Dates: start: 20120221
  5. PEG-INTRON [Suspect]
     Indication: HEPATITIS C
     Dosage: 1.43 MCG/KG;QW;SC, 1.18 MCG/KG;QW;SC
     Route: 058
     Dates: start: 20120131, end: 20120220
  6. ALLEGRA [Concomitant]
  7. ALLOPURINOL [Concomitant]
  8. LOXOPROFEN [Concomitant]
  9. REBETOL [Suspect]
     Indication: HEPATITIS C
     Dosage: 800 MG;QD;PO, 600 MG;QD;PO, 400 MG;QD;PO
     Route: 048
     Dates: start: 20120222, end: 20120228
  10. REBETOL [Suspect]
     Indication: HEPATITIS C
     Dosage: 800 MG;QD;PO, 600 MG;QD;PO, 400 MG;QD;PO
     Route: 048
     Dates: start: 20120131, end: 20120221
  11. REBETOL [Suspect]
     Indication: HEPATITIS C
     Dosage: 800 MG;QD;PO, 600 MG;QD;PO, 400 MG;QD;PO
     Route: 048
     Dates: start: 20120229
  12. TELAVIC (ANTIVIRALS NOS) [Suspect]
     Indication: HEPATITIS C
     Dosage: 2250 MG;QD;PO, 1500 MG;QD;PO
     Route: 048
     Dates: start: 20120131, end: 20120306
  13. TELAVIC (ANTIVIRALS NOS) [Suspect]
     Indication: HEPATITIS C
     Dosage: 2250 MG;QD;PO, 1500 MG;QD;PO
     Route: 048
     Dates: start: 20120307, end: 20120424
  14. DOMPERIDONE [Concomitant]
  15. ANTEBATE [Concomitant]
  16. AMOBAN [Concomitant]
  17. DEPAS [Concomitant]

REACTIONS (9)
  - INSOMNIA [None]
  - BLOOD CREATININE INCREASED [None]
  - PRURITUS [None]
  - DECREASED APPETITE [None]
  - LISTLESS [None]
  - PLATELET COUNT DECREASED [None]
  - ERYTHEMA [None]
  - HAEMOGLOBIN DECREASED [None]
  - HYPERURICAEMIA [None]
